FAERS Safety Report 8901453 (Version 1)
Quarter: 2012Q4

REPORT INFORMATION
  Report Type: 
  Country: US (occurrence: US)
  Receive Date: 20121108
  Receipt Date: 20121108
  Transmission Date: 20130627
  Serious: No
  Sender: FDA-Public Use
  Company Number: US-ASTRAZENECA-2012SE82151

PATIENT
  Age: 56 Year
  Sex: Female

DRUGS (1)
  1. NEXIUM [Suspect]
     Route: 048

REACTIONS (6)
  - Oesophageal pain [Unknown]
  - Dyspepsia [Unknown]
  - Pain [Unknown]
  - Gastric disorder [Unknown]
  - Malaise [Unknown]
  - Drug dose omission [Unknown]
